FAERS Safety Report 10279247 (Version 3)
Quarter: 2015Q2

REPORT INFORMATION
  Report Type: Spontaneous
  Country: US (occurrence: US)
  Receive Date: 20140707
  Receipt Date: 20150513
  Transmission Date: 20150821
  Serious: Yes (Other)
  Sender: FDA-Public Use
  Company Number: US-BIOGENIDEC-2014BI060375

PATIENT
  Sex: Female

DRUGS (13)
  1. TYSABRI [Suspect]
     Active Substance: NATALIZUMAB
     Indication: MULTIPLE SCLEROSIS
     Route: 042
     Dates: start: 20070315, end: 20140512
  2. REMERON [Concomitant]
     Active Substance: MIRTAZAPINE
     Route: 048
  3. TRAZODONE HYDROCHLORIDE. [Concomitant]
     Active Substance: TRAZODONE HYDROCHLORIDE
     Route: 048
  4. TYLENOL WITH CODEINE 300-30 MG (ACETAMINOPHEN-CODEINE) [Concomitant]
     Route: 048
  5. AMMONIUM LACTATE. [Concomitant]
     Active Substance: AMMONIUM LACTATE
  6. OXYBUTYNIN CHLORIDE. [Concomitant]
     Active Substance: OXYBUTYNIN CHLORIDE
     Route: 048
  7. LIDODERM 5% PATCH (LIDOCAINE) [Concomitant]
  8. VALIUM [Concomitant]
     Active Substance: DIAZEPAM
     Route: 048
  9. VITAMIN D 1000 UNITS [Concomitant]
  10. CALCIUM CARBONATE. [Concomitant]
     Active Substance: CALCIUM CARBONATE
  11. BACLOFEN. [Concomitant]
     Active Substance: BACLOFEN
  12. AVONEX [Concomitant]
     Active Substance: INTERFERON BETA-1A
     Indication: PRODUCT USED FOR UNKNOWN INDICATION
     Route: 030
     Dates: start: 2005, end: 2009
  13. B COMPLEX MAXI CAPS (B COMPLEX-FOLIC ACID) [Concomitant]
     Route: 048

REACTIONS (5)
  - Prescribed underdose [Unknown]
  - Balance disorder [Unknown]
  - Alopecia [Unknown]
  - Multiple sclerosis [Not Recovered/Not Resolved]
  - Intervertebral disc compression [Not Recovered/Not Resolved]

NARRATIVE: CASE EVENT DATE: 2014
